FAERS Safety Report 10684990 (Version 1)
Quarter: 2014Q4

REPORT INFORMATION
  Report Type: Spontaneous
  Country: US (occurrence: None)
  Receive Date: 20141230
  Receipt Date: 20141230
  Transmission Date: 20150529
  Serious: Yes (Life-Threatening, Hospitalization)
  Sender: FDA-Public Use
  Company Number: None

PATIENT
  Age: 49 Year
  Sex: Female
  Weight: 65.77 kg

DRUGS (1)
  1. REMICADE [Suspect]
     Active Substance: INFLIXIMAB
     Indication: COLITIS ULCERATIVE
     Dosage: 1 TREATMENT IN 04/07/2014
     Dates: start: 20140407

REACTIONS (6)
  - Vascular pain [None]
  - Dyspnoea [None]
  - Asthenia [None]
  - Fatigue [None]
  - Malaise [None]
  - No reaction on previous exposure to drug [None]
